FAERS Safety Report 22325111 (Version 2)
Quarter: 2023Q2

REPORT INFORMATION
  Report Type: Report from Study
  Country: US (occurrence: US)
  Receive Date: 20230516
  Receipt Date: 20230609
  Transmission Date: 20230721
  Serious: Yes (Other)
  Sender: FDA-Public Use
  Company Number: US-PFIZER INC-PV202200130194

PATIENT
  Age: 63 Year
  Sex: Female

DRUGS (3)
  1. IBRANCE [Suspect]
     Active Substance: PALBOCICLIB
     Indication: Breast cancer
     Dosage: 75 MG, CYCLIC (DAILY 21 DAYS ON 7 DAYS OFF)
     Route: 048
     Dates: start: 20221219, end: 20230419
  2. IBRANCE [Suspect]
     Active Substance: PALBOCICLIB
     Dosage: 75 MG, CYCLIC (DAILY 21 DAYS ON 7 DAYS OFF)
     Route: 048
     Dates: start: 20230508
  3. LETROZOLE [Concomitant]
     Active Substance: LETROZOLE
     Indication: Breast cancer
     Dosage: UNK, DAILY
     Dates: start: 20221219

REACTIONS (2)
  - Tooth disorder [Unknown]
  - Increased appetite [Unknown]

NARRATIVE: CASE EVENT DATE: 20230419
